FAERS Safety Report 6158325-8 (Version None)
Quarter: 2009Q2

REPORT INFORMATION
  Report Type: 
  Country: None (occurrence: None)
  Receive Date: 20090414
  Receipt Date: 20090414
  Transmission Date: 20091009
  Serious: No
  Sender: FDA-Public Use
  Company Number: None

PATIENT
  Sex: Female
  Weight: 130 kg

DRUGS (7)
  1. FOSAMAX [Suspect]
     Dosage: 70MG TABLET QWEEK ORAL
     Route: 048
     Dates: start: 20080114, end: 20090413
  2. ASPIRIN [Concomitant]
  3. CALCIUM + D [Concomitant]
  4. MULTI-VITAMINS [Concomitant]
  5. SPIRONOLACTONE [Concomitant]
  6. TOPROL-XL [Concomitant]
  7. VICODIN [Concomitant]

REACTIONS (2)
  - DRUG INTOLERANCE [None]
  - GASTROINTESTINAL DISORDER [None]
